FAERS Safety Report 12294392 (Version 2)
Quarter: 2016Q2

REPORT INFORMATION
  Report Type: Report from Study
  Country: US (occurrence: US)
  Receive Date: 20160422
  Receipt Date: 20160428
  Transmission Date: 20160815
  Serious: No
  Sender: FDA-Public Use
  Company Number: PHEH2016US009902

PATIENT
  Age: 86 Year
  Sex: Male

DRUGS (1)
  1. JADENU [Suspect]
     Active Substance: DEFERASIROX
     Indication: PRODUCT USED FOR UNKNOWN INDICATION
     Dosage: 360 MG, UNK
     Route: 048

REACTIONS (3)
  - Hypersensitivity [Unknown]
  - Rash generalised [Unknown]
  - Rash [Unknown]

NARRATIVE: CASE EVENT DATE: 20160404
